FAERS Safety Report 11135457 (Version 4)
Quarter: 2015Q4

REPORT INFORMATION
  Report Type: Spontaneous
  Country: US (occurrence: None)
  Receive Date: 20150521
  Receipt Date: 20151216
  Transmission Date: 20160304
  Serious: Yes (Hospitalization, Other)
  Sender: FDA-Public Use
  Company Number: ADR-2015-00918

PATIENT
  Age: 60 Year
  Sex: Female

DRUGS (2)
  1. BACLOFEN INTRATHECAL 500 MCG/ML [Suspect]
     Active Substance: BACLOFEN
     Indication: MUSCLE SPASTICITY
     Dosage: 114.91 MCG/DAY
  2. BUPIVACAINE INTRATHECAL 2.5 MG/ML [Suspect]
     Active Substance: BUPIVACAINE
     Dosage: 0.5746MG/DAY

REACTIONS (14)
  - Aspartate aminotransferase increased [None]
  - Device malfunction [None]
  - Sedation [None]
  - Blood glucose increased [None]
  - Unresponsive to stimuli [None]
  - Mental status changes [None]
  - Blood potassium decreased [None]
  - Haematocrit decreased [None]
  - Lethargy [None]
  - Confusional state [None]
  - Haemoglobin decreased [None]
  - Fatigue [None]
  - Loss of consciousness [None]
  - Overdose [None]
